FAERS Safety Report 21161357 (Version 1)
Quarter: 2022Q3

REPORT INFORMATION
  Report Type: Spontaneous
  Country: GB (occurrence: GB)
  Receive Date: 20220802
  Receipt Date: 20220802
  Transmission Date: 20221027
  Serious: Yes (Other)
  Sender: FDA-Public Use
  Company Number: None

PATIENT
  Age: 62 Year
  Sex: Male

DRUGS (14)
  1. LINEZOLID [Suspect]
     Active Substance: LINEZOLID
     Dosage: 600 MG, 2X/DAY
     Dates: end: 20220712
  2. TACROLIMUS [Concomitant]
     Active Substance: TACROLIMUS
     Dosage: UNK
  3. ASPIRIN [Concomitant]
     Active Substance: ASPIRIN
     Dosage: UNK
  4. BISOPROLOL [Concomitant]
     Active Substance: BISOPROLOL
     Dosage: UNK
  5. CELLCEPT [Concomitant]
     Active Substance: MYCOPHENOLATE MOFETIL
     Dosage: UNK
  6. COTRIMOXAZOLE [Concomitant]
     Active Substance: SULFAMETHOXAZOLE\TRIMETHOPRIM
     Dosage: UNK
  7. ENOXAPARIN [Concomitant]
     Active Substance: ENOXAPARIN
     Dosage: UNK
  8. FUROSEMIDE [Concomitant]
     Active Substance: FUROSEMIDE
     Dosage: UNK
  9. EPOETIN BETA [Concomitant]
     Active Substance: ERYTHROPOIETIN
     Dosage: UNK
  10. OMEPRAZOLE [Concomitant]
     Active Substance: OMEPRAZOLE
     Dosage: UNK
  11. ONEALFA [Concomitant]
     Active Substance: ALFACALCIDOL
     Dosage: UNK
  12. PREDNISOLONE [Concomitant]
     Active Substance: PREDNISOLONE
     Dosage: UNK
  13. SIMVASTATIN [Concomitant]
     Active Substance: SIMVASTATIN
     Dosage: UNK
  14. VALGANCICLOVIR [Concomitant]
     Active Substance: VALGANCICLOVIR
     Dosage: UNK

REACTIONS (1)
  - Thrombocytopenia [Not Recovered/Not Resolved]

NARRATIVE: CASE EVENT DATE: 20220721
